FAERS Safety Report 13251473 (Version 2)
Quarter: 2017Q1

REPORT INFORMATION
  Report Type: Report from Study
  Country: US (occurrence: US)
  Receive Date: 20170220
  Receipt Date: 20170314
  Transmission Date: 20170428
  Serious: Yes (Hospitalization, Other)
  Sender: FDA-Public Use
  Company Number: US-GILEAD-2017-0252661

PATIENT
  Age: 74 Year
  Sex: Female
  Weight: 75.74 kg

DRUGS (8)
  1. OMEPRAZOLE. [Concomitant]
     Active Substance: OMEPRAZOLE
  2. ZOLOFT [Concomitant]
     Active Substance: SERTRALINE HYDROCHLORIDE
  3. PRAVASTATIN. [Concomitant]
     Active Substance: PRAVASTATIN
  4. DEMADEX [Concomitant]
     Active Substance: TORSEMIDE
  5. RAMIPRIL. [Concomitant]
     Active Substance: RAMIPRIL
  6. BACTRIM DS [Concomitant]
     Active Substance: SULFAMETHOXAZOLE\TRIMETHOPRIM
  7. AMBRISENTAN [Suspect]
     Active Substance: AMBRISENTAN
     Indication: PULMONARY ARTERIAL HYPERTENSION
     Dosage: 10 MG, QD
     Route: 048
     Dates: start: 20130501
  8. VENTAVIS [Concomitant]
     Active Substance: ILOPROST

REACTIONS (3)
  - Peripheral swelling [Not Recovered/Not Resolved]
  - Fluid retention [Not Recovered/Not Resolved]
  - Right ventricular failure [Not Recovered/Not Resolved]
